FAERS Safety Report 10582297 (Version 1)
Quarter: 2014Q4

REPORT INFORMATION
  Report Type: Other
  Country: US (occurrence: US)
  Receive Date: 20141113
  Receipt Date: 20141113
  Transmission Date: 20150529
  Serious: No
  Sender: FDA-Public Use
  Company Number: US-MYLANLABS-2014M1005078

PATIENT
  Sex: Female

DRUGS (1)
  1. XULANE [Suspect]
     Active Substance: ETHINYL ESTRADIOL\NORELGESTROMIN
     Indication: CONTRACEPTION
     Dosage: 150/35 ?G/QD; CHANGES Q WK X3, WK 4 OFF
     Route: 062
     Dates: start: 20140720, end: 20140729

REACTIONS (7)
  - Hypertension [Not Recovered/Not Resolved]
  - Application site swelling [Recovered/Resolved]
  - Application site rash [Recovered/Resolved]
  - Skin hyperpigmentation [Not Recovered/Not Resolved]
  - Application site pruritus [Recovered/Resolved]
  - Application site irritation [Recovered/Resolved]
  - Application site pain [Recovered/Resolved]

NARRATIVE: CASE EVENT DATE: 201407
